FAERS Safety Report 9385123 (Version 1)
Quarter: 2013Q3

REPORT INFORMATION
  Report Type: Spontaneous
  Country: FR (occurrence: FR)
  Receive Date: 20130705
  Receipt Date: 20130705
  Transmission Date: 20140515
  Serious: Yes (Hospitalization)
  Sender: FDA-Public Use
  Company Number: FR-UCBSA-090418

PATIENT
  Age: 47 Year
  Sex: Male

DRUGS (9)
  1. KEPPRA [Suspect]
     Dates: start: 20111207, end: 201112
  2. KEPPRA [Suspect]
     Dates: start: 20111212, end: 20111214
  3. SOLU MEDROL [Concomitant]
     Dates: start: 2011, end: 20111219
  4. OFLOCET [Concomitant]
  5. RIVOTRIL [Concomitant]
     Indication: EPILEPSY
  6. PRODILANTIN [Concomitant]
     Indication: EPILEPSY
  7. VALIUM [Concomitant]
  8. DI-HYDAN [Concomitant]
  9. DEKAPINE [Concomitant]

REACTIONS (3)
  - Toxic skin eruption [Recovered/Resolved]
  - Eosinophilia [Recovered/Resolved]
  - Drug reaction with eosinophilia and systemic symptoms [Unknown]
